FAERS Safety Report 4349965-7 (Version None)
Quarter: 2004Q2

REPORT INFORMATION
  Report Type: 
  Country: None (occurrence: None)
  Receive Date: 20040428
  Receipt Date: 20040428
  Transmission Date: 20050107
  Serious: Yes (Other)
  Sender: FDA-Public Use
  Company Number: None

PATIENT
  Age: 25 Year
  Sex: Male
  Weight: 66.2252 kg

DRUGS (10)
  1. ZYPREXA [Suspect]
     Indication: SCHIZOAFFECTIVE DISORDER
     Dosage: Q HS (ORALLY)
     Route: 048
     Dates: start: 20040129, end: 20040204
  2. FLUOXETINE [Concomitant]
  3. NICORETTE [Concomitant]
  4. NABUMETONE [Concomitant]
  5. ACETAMINOPHEN [Concomitant]
  6. SEROQUEL [Concomitant]
  7. LORAZEPAM [Concomitant]
  8. HYDROXYZINE PAMOATE [Concomitant]
  9. MAALOX [Concomitant]
  10. MILK OF MAGNESIA TAB [Concomitant]

REACTIONS (3)
  - HYPERSENSITIVITY [None]
  - OROPHARYNGEAL SWELLING [None]
  - SWELLING FACE [None]
